FAERS Safety Report 4345020-0 (Version None)
Quarter: 2004Q2

REPORT INFORMATION
  Report Type: 
  Country: None (occurrence: None)
  Receive Date: 20040420
  Receipt Date: 20040408
  Transmission Date: 20050107
  Serious: Yes (Hospitalization)
  Sender: FDA-Public Use
  Company Number: 2004PK00656

PATIENT

DRUGS (3)
  1. IRESSA [Suspect]
     Indication: COLORECTAL CANCER
     Dosage: 250 MG DAILY PO
     Route: 048
     Dates: start: 20040224
  2. IRINOTECAN [Suspect]
     Indication: COLORECTAL CANCER
  3. CAPECITABINE [Suspect]
     Indication: COLORECTAL CANCER
     Dosage: 800 MG/M2 DAILY PO
     Route: 048

REACTIONS (5)
  - OEDEMA [None]
  - OLIGURIA [None]
  - PULMONARY OEDEMA [None]
  - RENAL FAILURE [None]
  - RESPIRATORY FAILURE [None]
